FAERS Safety Report 7579065-4 (Version None)
Quarter: 2011Q2

REPORT INFORMATION
  Report Type: 
  Country: None (occurrence: None)
  Receive Date: 20110628
  Receipt Date: 20110621
  Transmission Date: 20111010
  Serious: Yes (Hospitalization)
  Sender: FDA-Public Use
  Company Number: FR-B.I. PHARMACEUTICALS,INC./RIDGEFIELD-2011-FF-00600FF

PATIENT
  Sex: Female

DRUGS (2)
  1. HORMONE THERAPY [Concomitant]
  2. PRADAXA [Suspect]
     Indication: HIP ARTHROPLASTY
     Route: 048
     Dates: start: 20110404, end: 20110509

REACTIONS (1)
  - FRACTURED SACRUM [None]
